FAERS Safety Report 8115645-5 (Version None)
Quarter: 2012Q1

REPORT INFORMATION
  Report Type: 
  Country: None (occurrence: None)
  Receive Date: 20120206
  Receipt Date: 20120127
  Transmission Date: 20120608
  Serious: Yes (Hospitalization)
  Sender: FDA-Public Use
  Company Number: PL-SANOFI-AVENTIS-2012SA002072

PATIENT
  Age: 36 Year
  Sex: Female

DRUGS (7)
  1. CORTICOSTEROIDS [Concomitant]
     Indication: HELLP SYNDROME
  2. ANTIHYPERTENSIVES [Concomitant]
     Indication: HELLP SYNDROME
  3. ENOXAPARIN SODIUM [Suspect]
     Indication: HELLP SYNDROME
     Route: 058
  4. ENOXAPARIN SODIUM [Suspect]
     Route: 058
  5. ENOXAPARIN SODIUM [Suspect]
     Route: 058
  6. HEPARIN [Concomitant]
     Dosage: ROUTE: SUBCUTANEOUS
  7. IMMUNE GLOBULIN NOS [Concomitant]
     Indication: HELLP SYNDROME
     Route: 042

REACTIONS (2)
  - MATERNAL EXPOSURE DURING PREGNANCY [None]
  - FOETAL DEATH [None]
